FAERS Safety Report 14967282 (Version 1)
Quarter: 2018Q3

REPORT INFORMATION
  Report Type: Report from Study
  Country: IT (occurrence: IT)
  Receive Date: 20180604
  Receipt Date: 20180604
  Transmission Date: 20181010
  Serious: No
  Sender: FDA-Public Use
  Company Number: IT-CHEPLA-C20170716_A

PATIENT
  Age: 41 Year
  Sex: Male

DRUGS (3)
  1. ARSENIC TRIOXIDE, ATO [Suspect]
     Active Substance: ARSENIC TRIOXIDE
     Indication: ACUTE PROMYELOCYTIC LEUKAEMIA
     Dosage: 0.15 MG/KG/DAY FOR 5 DAYS/WEEK, ON ALTERNATE MONTH FOR TOTAL 3 MONTH
  2. ALL?TRANS RETINOIC ACID, ATRA [Suspect]
     Active Substance: TRETINOIN
     Indication: ACUTE PROMYELOCYTIC LEUKAEMIA
     Dosage: 2 WEEKS ON 2 WEEKS OFF
  3. ARSENIC TRIOXIDE, ATO [Suspect]
     Active Substance: ARSENIC TRIOXIDE
     Indication: ACUTE PROMYELOCYTIC LEUKAEMIA
     Dosage: 387 MG DURING INDUCTION, TOTAL: 1040 MG

REACTIONS (2)
  - Hypoaesthesia [Recovered/Resolved]
  - Axonal neuropathy [Recovered/Resolved]
